FAERS Safety Report 14656356 (Version 1)
Quarter: 2018Q1

REPORT INFORMATION
  Report Type: Spontaneous
  Country: BE (occurrence: BE)
  Receive Date: 20180319
  Receipt Date: 20180319
  Transmission Date: 20180509
  Serious: Yes (Other)
  Sender: FDA-Public Use
  Company Number: BE-PFIZER INC-2018106654

PATIENT
  Age: 69 Year
  Sex: Female
  Weight: 58 kg

DRUGS (6)
  1. ALIZAPRIDE [Concomitant]
     Active Substance: ALIZAPRIDE
     Dosage: 100 MG
     Route: 042
  2. CETRIZINE [Concomitant]
     Active Substance: CETIRIZINE HYDROCHLORIDE
     Dosage: 10 MG
     Route: 065
  3. TRASTUZUMAB. [Concomitant]
     Active Substance: TRASTUZUMAB
     Dosage: 116 MG, UNK
     Route: 042
  4. RANITIDINE. [Concomitant]
     Active Substance: RANITIDINE
     Dosage: 100 MG
     Route: 042
  5. DEXAMETHASONE. [Concomitant]
     Active Substance: DEXAMETHASONE
     Dosage: 10 MG
     Route: 042
  6. PACLITAXEL. [Suspect]
     Active Substance: PACLITAXEL
     Dosage: 132.8 MG, UNK
     Route: 042

REACTIONS (3)
  - Skin lesion [Unknown]
  - Bronchospasm [Unknown]
  - Hypotension [Unknown]

NARRATIVE: CASE EVENT DATE: 20170501
